FAERS Safety Report 7605489 (Version 5)
Quarter: 2012Q4

REPORT INFORMATION
  Report Type: Report from Study
  Country: DE (occurrence: DE)
  Receive Date: 20100924
  Receipt Date: 20121213
  Transmission Date: 20130627
  Serious: Yes (Hospitalization, Other)
  Sender: FDA-Public Use
  Company Number: DE-ROCHE-725717

PATIENT
  Age: 37 None
  Sex: Male
  Weight: 92 kg

DRUGS (19)
  1. METHOXY POLYETHYLENE GLYCOL-EPOETIN BETA [Suspect]
     Indication: NEPHROGENIC ANAEMIA
     Dosage: DOSE: 150, BATCH: 112010H, GALENICAL FORM: 0463H02
     Route: 058
     Dates: start: 20091102, end: 20091222
  2. METHOXY POLYETHYLENE GLYCOL-EPOETIN BETA [Suspect]
     Dosage: DOSE: 175
     Route: 058
     Dates: start: 20091222, end: 20100222
  3. METHOXY POLYETHYLENE GLYCOL-EPOETIN BETA [Suspect]
     Dosage: DOSE: 250, BATCH: 062012, GALENICAL FORM: H6
     Route: 058
     Dates: start: 20100222, end: 20100319
  4. METHOXY POLYETHYLENE GLYCOL-EPOETIN BETA [Suspect]
     Dosage: DOSE: 300
     Route: 058
     Dates: start: 20100319, end: 20100420
  5. METHOXY POLYETHYLENE GLYCOL-EPOETIN BETA [Suspect]
     Dosage: DOS: 325
     Route: 058
     Dates: start: 20100420, end: 20100512
  6. METHOXY POLYETHYLENE GLYCOL-EPOETIN BETA [Suspect]
     Dosage: DOSE: 275
     Route: 058
  7. METHOXY POLYETHYLENE GLYCOL-EPOETIN BETA [Suspect]
     Route: 058
     Dates: start: 20100616, end: 20100710
  8. METHOXY POLYETHYLENE GLYCOL-EPOETIN BETA [Suspect]
     Route: 058
     Dates: start: 20100714, end: 20100804
  9. METHOXY POLYETHYLENE GLYCOL-EPOETIN BETA [Suspect]
     Dosage: DOSE: 350, BATCH: H0532H01, H0472H02
     Route: 058
     Dates: start: 20100804, end: 20100901
  10. METHOXY POLYETHYLENE GLYCOL-EPOETIN BETA [Suspect]
     Dosage: DOSE: 400
     Route: 058
  11. DREISAVIT N [Concomitant]
     Indication: RENAL FAILURE
     Dosage: DOSE: 1 PER DAY
     Route: 048
  12. CALCITRIOL [Concomitant]
     Indication: RENAL FAILURE
     Route: 048
  13. CALCIUM ACETATE [Concomitant]
     Indication: RENAL FAILURE
     Route: 048
  14. NEFROCARNIT [Concomitant]
     Indication: RENAL FAILURE
     Route: 042
  15. BICA NORM [Concomitant]
     Indication: RENAL FAILURE
     Dosage: DOSE: 1 TABLET
     Route: 048
  16. BELOC-ZOK MITE [Concomitant]
     Indication: HYPERTENSION
     Route: 048
  17. RAMIPRIL [Concomitant]
     Indication: HYPERTENSION
     Route: 048
  18. MELOXICAM [Concomitant]
     Indication: HAEMOLYTIC URAEMIC SYNDROME
     Route: 048
  19. FERRLECIT [Concomitant]
     Indication: RENAL FAILURE
     Route: 042

REACTIONS (2)
  - Myocarditis [Unknown]
  - Haemoglobin decreased [Recovered/Resolved]
